FAERS Safety Report 7256404-5 (Version None)
Quarter: 2011Q1

REPORT INFORMATION
  Report Type: 
  Country: None (occurrence: None)
  Receive Date: 20110129
  Receipt Date: 20100816
  Transmission Date: 20110831
  Serious: No
  Sender: FDA-Public Use
  Company Number: US-ABBOTT-10P-163-0659065-00

PATIENT
  Age: 41 Year
  Sex: Male

DRUGS (2)
  1. SINGULAIR [Concomitant]
     Indication: ASTHMA
  2. HUMIRA [Suspect]
     Indication: PSORIASIS
     Dates: start: 20100622

REACTIONS (3)
  - INJECTION SITE HAEMORRHAGE [None]
  - INCORRECT DOSE ADMINISTERED [None]
  - WRONG TECHNIQUE IN DRUG USAGE PROCESS [None]
